FAERS Safety Report 4311025-9 (Version None)
Quarter: 2004Q1

REPORT INFORMATION
  Report Type: 
  Country: None (occurrence: None)
  Receive Date: 20040302
  Receipt Date: 20040225
  Transmission Date: 20041129
  Serious: Yes (Hospitalization)
  Sender: FDA-Public Use
  Company Number: GRP04000045

PATIENT
  Age: 38 Year
  Sex: Male

DRUGS (1)
  1. DANTAMACRIN (DANTROLENE SODIUM) CAPSULE, UNKNOWN MG [Suspect]
     Indication: QUADRIPARESIS
     Dosage: ORAL
     Route: 048
     Dates: start: 20010101

REACTIONS (4)
  - BRADYCARDIA [None]
  - HYPOTHERMIA [None]
  - LEUKOPENIA [None]
  - THROMBOCYTOPENIA [None]
